FAERS Safety Report 4865946-9 (Version None)
Quarter: 2005Q4

REPORT INFORMATION
  Report Type: 
  Country: None (occurrence: None)
  Receive Date: 20051226
  Receipt Date: 20050728
  Transmission Date: 20060501
  Serious: Yes (Life-Threatening, Disabling)
  Sender: FDA-Public Use
  Company Number: PHHO2005ES11851

PATIENT
  Age: 54 Year
  Sex: Male
  Weight: 75.4 kg

DRUGS (1)
  1. GLEEVEC [Suspect]
     Indication: CHRONIC MYELOID LEUKAEMIA
     Dosage: 400 MG, QD
     Route: 048
     Dates: start: 20040604, end: 20050727

REACTIONS (5)
  - CHEST PAIN [None]
  - LUNG ADENOCARCINOMA [None]
  - LUNG NEOPLASM [None]
  - MEDIASTINAL MASS [None]
  - PLEURAL EFFUSION [None]
